FAERS Safety Report 16679928 (Version 1)
Quarter: 2019Q3

REPORT INFORMATION
  Report Type: Spontaneous
  Country: US (occurrence: US)
  Receive Date: 20190807
  Receipt Date: 20190807
  Transmission Date: 20191004
  Serious: Yes (Hospitalization, Other)
  Sender: FDA-Public Use
  Company Number: US-PFIZER INC-2019333637

PATIENT
  Age: 69 Year
  Sex: Female

DRUGS (2)
  1. LORBRENA [Suspect]
     Active Substance: LORLATINIB
     Dosage: UNK
     Dates: start: 20190319
  2. LORBRENA [Suspect]
     Active Substance: LORLATINIB
     Indication: LUNG NEOPLASM MALIGNANT
     Dosage: 25 MG, UNK

REACTIONS (11)
  - Cough [Unknown]
  - Fall [Unknown]
  - Nausea [Unknown]
  - Asthenia [Unknown]
  - Hepatic cancer [Unknown]
  - Cognitive disorder [Unknown]
  - Second primary malignancy [Unknown]
  - Ataxia [Unknown]
  - Toxicity to various agents [Unknown]
  - Fatigue [Unknown]
  - Abdominal pain upper [Unknown]
